FAERS Safety Report 8391876-4 (Version None)
Quarter: 2012Q2

REPORT INFORMATION
  Report Type: 
  Country: None (occurrence: None)
  Receive Date: 20120529
  Receipt Date: 20120521
  Transmission Date: 20120825
  Serious: Yes (Other)
  Sender: FDA-Public Use
  Company Number: US-GLAXOSMITHKLINE-A0978411A

PATIENT
  Age: 15 Year
  Sex: Female

DRUGS (3)
  1. LAMICTAL [Suspect]
     Indication: BIPOLAR DISORDER
     Dosage: 50MG PER DAY
     Route: 048
     Dates: start: 20120501, end: 20120521
  2. BIRTH CONTROL [Concomitant]
  3. SEROQUEL XR [Concomitant]

REACTIONS (5)
  - COMMUNICATION DISORDER [None]
  - RESPIRATORY DISTRESS [None]
  - INSOMNIA [None]
  - DYSPNOEA [None]
  - SPEECH DISORDER [None]
